FAERS Safety Report 6692213-3 (Version None)
Quarter: 2010Q2

REPORT INFORMATION
  Report Type: 
  Country: None (occurrence: None)
  Receive Date: 20100422
  Receipt Date: 20090710
  Transmission Date: 20101027
  Serious: No
  Sender: FDA-Public Use
  Company Number: US-ASTRAZENECA-2009UW13932

PATIENT
  Age: 76 Year
  Sex: Male

DRUGS (7)
  1. TOPROL-XL [Suspect]
     Indication: BLOOD PRESSURE
     Route: 048
     Dates: start: 20020101, end: 20060101
  2. TOPROL-XL [Suspect]
     Route: 048
     Dates: start: 20060101, end: 20060101
  3. TOPROL-XL [Suspect]
     Route: 048
     Dates: start: 20060101
  4. CRESTOR [Suspect]
     Route: 048
     Dates: start: 20070101
  5. MOEXIPRIL HYDROCHLORIDE [Concomitant]
  6. WARFARIN SODIUM [Concomitant]
  7. LIPITOR [Concomitant]

REACTIONS (2)
  - BLOOD PRESSURE DECREASED [None]
  - SLUGGISHNESS [None]
